FAERS Safety Report 6147526-0 (Version None)
Quarter: 2009Q2

REPORT INFORMATION
  Report Type: 
  Country: None (occurrence: None)
  Receive Date: 20090406
  Receipt Date: 20090325
  Transmission Date: 20091009
  Serious: Yes (Hospitalization)
  Sender: FDA-Public Use
  Company Number: 2009-193866-NL

PATIENT
  Age: 71 Year
  Sex: Female

DRUGS (14)
  1. MIRTAZAPINE [Suspect]
     Indication: DEPRESSION
     Dosage: 40 DF ORAL
     Route: 048
     Dates: start: 20080905, end: 20080905
  2. ZOLPIDEM TARTRATE [Suspect]
     Indication: SLEEP DISORDER
     Dosage: 10 MG/300 MG/ 10 MG
     Dates: end: 20080901
  3. ZOLPIDEM TARTRATE [Suspect]
     Indication: SLEEP DISORDER
     Dosage: 10 MG/300 MG/ 10 MG
     Dates: end: 20080907
  4. OLANZAPINE [Suspect]
     Indication: BIPOLAR DISORDER
     Dosage: DF
  5. TIBOLONE [Concomitant]
  6. NIANSERIN HYDROCHLORIDE [Concomitant]
  7. ESOMEPRAZOLE MAGNESIUM [Concomitant]
  8. FOLIC ACID [Concomitant]
  9. FENTANYL [Concomitant]
  10. HEPARIN SODIUM [Concomitant]
  11. METHOTREXATE SODIUM [Concomitant]
  12. HYDROXOCOBALAMIN ACETATE [Concomitant]
  13. CALCIMAGON-D3 [Concomitant]
  14. PREDNISONE TAB [Concomitant]

REACTIONS (9)
  - DRUG INTERACTION [None]
  - ELECTROCARDIOGRAM QT PROLONGED [None]
  - FALL [None]
  - INJURY [None]
  - LOSS OF CONSCIOUSNESS [None]
  - OVERDOSE [None]
  - RENAL FAILURE [None]
  - SUICIDE ATTEMPT [None]
  - SYSTEMIC INFLAMMATORY RESPONSE SYNDROME [None]
